FAERS Safety Report 9210743 (Version 1)
Quarter: 2013Q2

REPORT INFORMATION
  Report Type: Spontaneous
  Country: IT (occurrence: IT)
  Receive Date: 20130404
  Receipt Date: 20130404
  Transmission Date: 20140414
  Serious: Yes (Hospitalization, Other)
  Sender: FDA-Public Use
  Company Number: PHHY2013IT031333

PATIENT
  Sex: Male

DRUGS (8)
  1. DELORAZEPAM [Suspect]
     Indication: INTENTIONAL SELF-INJURY
     Dosage: 0.5 MG, TOTAL
     Route: 048
     Dates: start: 201301
  2. DELORAZEPAM [Suspect]
     Dosage: 0.5 MG, TOTAL
     Route: 048
     Dates: start: 20130317, end: 20130317
  3. ALPRAZOLAM [Suspect]
     Indication: INTENTIONAL SELF-INJURY
     Dosage: 0.5 MG, TOTAL
     Route: 048
     Dates: start: 201301
  4. ALPRAZOLAM [Suspect]
     Dosage: 0.5 MG, TOTAL
     Route: 048
     Dates: start: 20130317, end: 20130317
  5. CITALOPRAM [Suspect]
     Indication: INTENTIONAL SELF-INJURY
     Dosage: 20 MG, TOTAL
     Route: 048
     Dates: start: 201301
  6. CITALOPRAM [Suspect]
     Dosage: 20 MG, TOTAL
     Route: 048
     Dates: start: 20130317, end: 20130317
  7. SEROQUEL [Suspect]
     Indication: INTENTIONAL SELF-INJURY
     Dosage: 50 MG, TOTAL
     Route: 048
     Dates: start: 201301
  8. SEROQUEL [Suspect]
     Dosage: 50 MG, TOTAL
     Route: 048
     Dates: start: 20130317

REACTIONS (2)
  - Speech disorder [Recovered/Resolved]
  - Somnolence [Recovered/Resolved]
